FAERS Safety Report 4630080-X (Version None)
Quarter: 2005Q2

REPORT INFORMATION
  Report Type: 
  Country: None (occurrence: None)
  Receive Date: 20050408
  Receipt Date: 20050124
  Transmission Date: 20051028
  Serious: Yes (Other)
  Sender: FDA-Public Use
  Company Number: US-ABBOTT-05P-163-0288022-00

PATIENT
  Sex: Female
  Weight: 80.812 kg

DRUGS (8)
  1. HUMIRA [Suspect]
     Indication: RHEUMATOID ARTHRITIS
     Dosage: 40 MG
     Route: 058
     Dates: start: 20041027, end: 20050114
  2. ISONIAZID [Concomitant]
     Indication: TUBERCULOSIS PROPHYLAXIS
     Dates: start: 20040211
  3. PYRIDOXINE HYDROCHLORIDE [Concomitant]
     Indication: TUBERCULOSIS PROPHYLAXIS
     Dates: start: 20040211
  4. LOTREL [Concomitant]
     Indication: HYPERTENSION
     Dosage: 5/10
     Dates: start: 19980320
  5. METHOTREXATE [Concomitant]
     Indication: RHEUMATOID ARTHRITIS
     Dates: start: 20030130
  6. FOLIC ACID [Concomitant]
     Indication: RHEUMATOID ARTHRITIS
     Dates: start: 20030130
  7. ALENDRONATE SODIUM [Concomitant]
     Indication: OSTEOPOROSIS
     Dates: start: 20030130
  8. BUCINDOLOL HYDROCHLORIDE [Concomitant]
     Indication: OSTEOARTHRITIS
     Dates: start: 20041008

REACTIONS (1)
  - BILE DUCT STONE [None]
